FAERS Safety Report 13160194 (Version 5)
Quarter: 2017Q2

REPORT INFORMATION
  Report Type: Spontaneous
  Country: US (occurrence: US)
  Receive Date: 20170127
  Receipt Date: 20170424
  Transmission Date: 20170830
  Serious: Yes (Death, Hospitalization)
  Sender: FDA-Public Use
  Company Number: US-ACTELION-A-NJ2017-148975

PATIENT
  Age: 71 Year
  Sex: Female
  Weight: 42.18 kg

DRUGS (3)
  1. VELETRI [Suspect]
     Active Substance: EPOPROSTENOL
     Dosage: 25 NG/KG, PER MIN
     Route: 042
     Dates: start: 20150106
  2. VELETRI [Suspect]
     Active Substance: EPOPROSTENOL
     Indication: PULMONARY ARTERIAL HYPERTENSION
     Dosage: 35 NG/KG, PER MIN
     Route: 042
  3. OPSUMIT [Suspect]
     Active Substance: MACITENTAN
     Indication: PULMONARY ARTERIAL HYPERTENSION
     Dosage: UNK
     Route: 048
     Dates: start: 20161011

REACTIONS (14)
  - Death [Fatal]
  - Left ventricular failure [Unknown]
  - Condition aggravated [Unknown]
  - Oxygen saturation decreased [Unknown]
  - Hypoglycaemia [Unknown]
  - Thrombocytopenia [Unknown]
  - Swelling [Unknown]
  - Abdominal cavity drainage [Unknown]
  - Hypoxia [Unknown]
  - Hepatic function abnormal [Unknown]
  - Pulmonary arterial hypertension [Unknown]
  - Right ventricular failure [Not Recovered/Not Resolved]
  - Ascites [Not Recovered/Not Resolved]
  - Hypotension [Unknown]

NARRATIVE: CASE EVENT DATE: 20170101
